FAERS Safety Report 9786077 (Version 3)
Quarter: 2014Q1

REPORT INFORMATION
  Report Type: Report from Study
  Country: ES (occurrence: ES)
  Receive Date: 20131227
  Receipt Date: 20140212
  Transmission Date: 20141002
  Serious: Yes (Life-Threatening, Hospitalization)
  Sender: FDA-Public Use
  Company Number: ES-ROCHE-1251878

PATIENT
  Age: 65 Year
  Sex: Female

DRUGS (23)
  1. PERTUZUMAB [Suspect]
     Indication: HER-2 POSITIVE BREAST CANCER
     Dosage: LOADING DOSE
     Route: 042
     Dates: start: 20130621, end: 20130621
  2. PERTUZUMAB [Suspect]
     Dosage: MAINTENANCE DOSE: DATE OF LAST DOSE OF PERTUZUMAB PRIOR TO SAE ON 11/JUL/2013 AND ON 11/SEP/2013
     Route: 042
  3. TRASTUZUMAB [Suspect]
     Indication: HER-2 POSITIVE BREAST CANCER
     Dosage: LOADING DOSE
     Route: 042
     Dates: start: 20130621, end: 20130621
  4. TRASTUZUMAB [Suspect]
     Dosage: MAINTENANCE DOSE: DATE OF LAST DOSE OF TRASTUZUMAB PRIOR TO SAE 11/JUL/2013 AND ON 11/SEP/2013
     Route: 042
  5. PACLITAXEL [Suspect]
     Indication: HER-2 POSITIVE BREAST CANCER
     Dosage: DATE OF LAST DOSE OF PACLITAXEL PRIOR TO SAE 11/JUL/2013
     Route: 042
     Dates: start: 20130621
  6. ALPRAZOLAM [Concomitant]
     Route: 065
     Dates: start: 2012
  7. DEXAMETHASONE [Concomitant]
     Route: 065
     Dates: start: 2012
  8. DEXAMETHASONE [Concomitant]
     Route: 065
     Dates: start: 20130621, end: 20130829
  9. DEXAMETHASONE [Concomitant]
     Route: 065
     Dates: start: 20130918, end: 20131003
  10. LEVOTHYROXINE [Concomitant]
     Route: 065
     Dates: start: 2012
  11. LEVOTHYROXINE [Concomitant]
     Route: 065
     Dates: start: 201302
  12. OMEPRAZOLE [Concomitant]
     Route: 065
     Dates: start: 2012
  13. METHYLPREDNISOLONE [Concomitant]
     Route: 065
     Dates: start: 20130713, end: 20130715
  14. LOPERAMIDE [Concomitant]
     Route: 065
     Dates: start: 20130715
  15. LOPERAMIDE [Concomitant]
     Route: 065
     Dates: start: 20130711
  16. PARACETAMOL [Concomitant]
     Route: 065
     Dates: start: 20130717
  17. PARACETAMOL [Concomitant]
     Route: 065
     Dates: start: 20130622
  18. RANITIDINE [Concomitant]
     Route: 065
     Dates: start: 20130718, end: 20130718
  19. RANITIDINE [Concomitant]
     Route: 065
     Dates: start: 20130621, end: 20130829
  20. DEXCHLORPHENIRAMINE [Concomitant]
     Route: 065
     Dates: start: 20130718, end: 20130718
  21. DEXCHLORPHENIRAMINE [Concomitant]
     Route: 065
     Dates: start: 20130621, end: 20130828
  22. OXYGEN [Concomitant]
     Route: 065
     Dates: start: 20131116
  23. IBUPROFEN [Concomitant]
     Route: 065
     Dates: start: 20130918

REACTIONS (2)
  - Dyspnoea [Recovered/Resolved]
  - Dyspnoea [Recovered/Resolved]
